FAERS Safety Report 9080437 (Version 1)
Quarter: 2013Q1

REPORT INFORMATION
  Report Type: Spontaneous
  Country: US (occurrence: US)
  Receive Date: 20130130
  Receipt Date: 20130130
  Transmission Date: 20140127
  Serious: No
  Sender: FDA-Public Use
  Company Number: US-ABBOTT-12P-163-0970515-00

PATIENT
  Sex: Male

DRUGS (4)
  1. HUMIRA 40 MG/0.8 ML PEN [Suspect]
     Indication: CROHN^S DISEASE
     Route: 058
     Dates: start: 201207, end: 201207
  2. HUMIRA 40 MG/0.8 ML PEN [Suspect]
     Dosage: DAY 15
  3. HUMIRA 40 MG/0.8 ML PEN [Suspect]
     Dosage: DAY 29
     Dates: start: 201208, end: 201208
  4. HUMIRA 40 MG/0.8 ML PEN [Suspect]
     Route: 058

REACTIONS (1)
  - Incorrect dose administered [Unknown]
